FAERS Safety Report 20289512 (Version 3)
Quarter: 2022Q1

REPORT INFORMATION
  Report Type: Report from Study
  Country: IL (occurrence: IL)
  Receive Date: 20220104
  Receipt Date: 20220117
  Transmission Date: 20220424
  Serious: Yes (Hospitalization)
  Sender: FDA-Public Use
  Company Number: IL-NOVARTISPH-NVSC2021IL299977

PATIENT
  Age: 37 Year
  Sex: Male
  Weight: 70 kg

DRUGS (2)
  1. CRIZANLIZUMAB [Suspect]
     Active Substance: CRIZANLIZUMAB
     Indication: Sickle cell anaemia with crisis
     Dosage: 350 MG
     Route: 042
     Dates: start: 20211117, end: 20211201
  2. NEXOFLOXACIN [Concomitant]
     Indication: Pyrexia
     Dosage: 2 UNK
     Route: 065
     Dates: start: 20211225, end: 20211230

REACTIONS (2)
  - Pain [Recovered/Resolved with Sequelae]
  - Jaundice [Unknown]

NARRATIVE: CASE EVENT DATE: 20211225
